FAERS Safety Report 5393426-3 (Version None)
Quarter: 2007Q3

REPORT INFORMATION
  Report Type: 
  Country: None (occurrence: None)
  Receive Date: 20070723
  Receipt Date: 20070712
  Transmission Date: 20080115
  Serious: Yes (Hospitalization)
  Sender: FDA-Public Use
  Company Number: US-JNJFOC-20070604874

PATIENT
  Sex: Male
  Weight: 108.41 kg

DRUGS (5)
  1. REMICADE [Suspect]
     Indication: RHEUMATOID ARTHRITIS
     Route: 042
  2. LIDODERM [Concomitant]
     Indication: BACK PAIN
  3. NEURONTIN [Concomitant]
     Indication: PAIN
     Route: 062
  4. MTX [Concomitant]
     Indication: RHEUMATOID ARTHRITIS
  5. BACLOFEN [Concomitant]
     Indication: MUSCLE SPASMS

REACTIONS (2)
  - LOSS OF CONSCIOUSNESS [None]
  - RESPIRATORY FAILURE [None]
